FAERS Safety Report 21599169 (Version 12)
Quarter: 2024Q1

REPORT INFORMATION
  Report Type: Report from Study
  Country: US (occurrence: US)
  Receive Date: 20221115
  Receipt Date: 20240111
  Transmission Date: 20240410
  Serious: Yes (Other)
  Sender: FDA-Public Use
  Company Number: US-TAKEDA-2022TUS084185

PATIENT
  Age: 68 Year
  Sex: Female
  Weight: 56 kg

DRUGS (9)
  1. MOBOCERTINIB [Suspect]
     Active Substance: MOBOCERTINIB
     Indication: Lung cancer metastatic
     Dosage: 160 MILLIGRAM, QD
     Route: 048
     Dates: start: 20221101
  2. MOBOCERTINIB [Suspect]
     Active Substance: MOBOCERTINIB
     Indication: Lung neoplasm malignant
     Dosage: 120 MILLIGRAM, QD
     Route: 048
  3. MOBOCERTINIB [Suspect]
     Active Substance: MOBOCERTINIB
     Dosage: 80 MILLIGRAM, QD
     Route: 048
     Dates: start: 20221226
  4. MOBOCERTINIB [Suspect]
     Active Substance: MOBOCERTINIB
     Dosage: 160 MILLIGRAM, QD
     Route: 065
  5. MOBOCERTINIB [Suspect]
     Active Substance: MOBOCERTINIB
     Dosage: 80 MILLIGRAM, QD
     Route: 048
     Dates: start: 20230703
  6. MOBOCERTINIB [Suspect]
     Active Substance: MOBOCERTINIB
     Dosage: 80 MILLIGRAM, QD
     Route: 048
  7. ATROPINE SULFATE [Concomitant]
     Active Substance: ATROPINE SULFATE
     Dosage: UNK
     Route: 065
  8. CHLORMADINONE ACETATE\ETHINYL ESTRADIOL [Concomitant]
     Active Substance: CHLORMADINONE ACETATE\ETHINYL ESTRADIOL
     Dosage: UNK
     Route: 065
  9. ZOMETA [Concomitant]
     Active Substance: ZOLEDRONIC ACID
     Dosage: UNK UNK, MONTHLY
     Route: 065

REACTIONS (13)
  - Lung neoplasm malignant [Unknown]
  - Metastases to central nervous system [Unknown]
  - Abdominal pain upper [Not Recovered/Not Resolved]
  - Weight decreased [Recovered/Resolved]
  - Diarrhoea [Not Recovered/Not Resolved]
  - Ingrowing nail [Unknown]
  - Flushing [Recovered/Resolved]
  - Chills [Unknown]
  - Feeling cold [Unknown]
  - Memory impairment [Unknown]
  - Illness [Unknown]
  - Cough [Unknown]
  - Rash [Recovered/Resolved]

NARRATIVE: CASE EVENT DATE: 20221113
